FAERS Safety Report 4615255-8 (Version None)
Quarter: 2005Q1

REPORT INFORMATION
  Report Type: 
  Country: None (occurrence: None)
  Receive Date: 20050317
  Receipt Date: 20050302
  Transmission Date: 20050727
  Serious: No
  Sender: FDA-Public Use
  Company Number: 30292

PATIENT
  Age: 86 Year
  Sex: Male

DRUGS (1)
  1. BRINZOLAMIDE 1% SUSPENSION (AZOPT) [Suspect]
     Indication: GLAUCOMA
     Dosage: 1 GTT BID OPHT
     Route: 047
     Dates: start: 20050213, end: 20050214

REACTIONS (2)
  - ABDOMINAL PAIN UPPER [None]
  - JAUNDICE [None]
